FAERS Safety Report 5727874-6 (Version None)
Quarter: 2008Q2

REPORT INFORMATION
  Report Type: 
  Country: None (occurrence: None)
  Receive Date: 20080505
  Receipt Date: 20080423
  Transmission Date: 20081010
  Serious: Yes (Life-Threatening, Hospitalization, Other)
  Sender: FDA-Public Use
  Company Number: CH-PFIZER INC-2006008419

PATIENT
  Age: 44 Year
  Sex: Female
  Weight: 60 kg

DRUGS (8)
  1. NEURONTIN [Suspect]
     Indication: NEURALGIA
     Dosage: DAILY DOSE:2700MG-FREQ:UNKNOWN
     Route: 048
  2. MORPHINE [Interacting]
     Indication: PAIN
     Dosage: DAILY DOSE:37.5MG-FREQ:UNKNOWN
     Route: 042
     Dates: start: 20051206, end: 20051206
  3. REMERON [Interacting]
     Indication: DEPRESSION
     Route: 048
  4. PARACETAMOL [Concomitant]
     Indication: ANAESTHESIA
  5. PROPOFOL [Concomitant]
     Indication: ANAESTHESIA
     Dates: start: 20051206, end: 20051206
  6. FENTANYL CITRATE [Concomitant]
     Indication: ANAESTHESIA
     Dosage: TEXT:TOTAL DOSE 350 MCG
     Route: 065
     Dates: start: 20051206, end: 20051206
  7. ATRACURIUM BESYLATE [Concomitant]
     Indication: ANAESTHESIA
     Dates: start: 20051206, end: 20051206
  8. CLONIDINE HCL [Concomitant]
     Indication: ANAESTHESIA
     Dates: start: 20051206, end: 20051206

REACTIONS (10)
  - BRADYPNOEA [None]
  - CYANOSIS [None]
  - DRUG INTERACTION [None]
  - DRUG TOXICITY [None]
  - FOOT OPERATION [None]
  - LOSS OF CONSCIOUSNESS [None]
  - MIOSIS [None]
  - NARCOTIC INTOXICATION [None]
  - RESPIRATORY DEPRESSION [None]
  - SEDATION [None]
